FAERS Safety Report 4339698-5 (Version None)
Quarter: 2004Q1

REPORT INFORMATION
  Report Type: 
  Country: None (occurrence: None)
  Receive Date: 20040329
  Receipt Date: 20040204
  Transmission Date: 20041129
  Serious: No
  Sender: FDA-Public Use
  Company Number: 04P-163-0249377-00

PATIENT
  Age: 63 Year
  Sex: Female

DRUGS (11)
  1. HUMIRA [Suspect]
     Indication: RHEUMATOID ARTHRITIS
     Dosage: 40 MG, 1 IN 2 WK, INJECTION
     Route: 042
     Dates: start: 20040115, end: 20040116
  2. CYCLOBENZAPRINE HYDROCHLORIDE [Concomitant]
  3. PROPACET 100 [Concomitant]
  4. AMITRIPTYLINE HCL [Concomitant]
  5. ZOCOR [Concomitant]
  6. ZETIA [Concomitant]
  7. LAMOTRIGINE [Concomitant]
  8. ALPRAZOLAM [Concomitant]
  9. OMEPRAZOLE [Concomitant]
  10. PRASTERONE [Concomitant]
  11. TRAMADOL HCL [Concomitant]

REACTIONS (3)
  - DIZZINESS [None]
  - HEADACHE [None]
  - NAUSEA [None]
